FAERS Safety Report 4949770-4 (Version None)
Quarter: 2006Q1

REPORT INFORMATION
  Report Type: 
  Country: None (occurrence: None)
  Receive Date: 20060315
  Receipt Date: 20060224
  Transmission Date: 20060701
  Serious: Yes (Hospitalization)
  Sender: FDA-Public Use
  Company Number: FR200602005065

PATIENT
  Age: 67 Year
  Sex: Female

DRUGS (5)
  1. FORTEO [Suspect]
     Indication: OSTEOPOROSIS
     Dosage: 20 UG, DAILY (1/D), SUBCUTANEOUS
     Route: 058
     Dates: start: 20060116
  2. FORTEO [Concomitant]
  3. CELECTOL [Concomitant]
  4. ART (DIACEREIN) [Concomitant]
  5. ACETAMINOPHEN W/ PROPOXYPHENE HCL [Concomitant]

REACTIONS (1)
  - PHLEBITIS [None]
